FAERS Safety Report 21250219 (Version 2)
Quarter: 2022Q3

REPORT INFORMATION
  Report Type: Report from Study
  Country: US (occurrence: US)
  Receive Date: 20220824
  Receipt Date: 20220917
  Transmission Date: 20221026
  Serious: No
  Sender: FDA-Public Use
  Company Number: US-NOVARTISTESTPH-NVSC2022US188122

PATIENT
  Sex: Female
  Weight: 76.6 kg

DRUGS (1)
  1. ENTRESTO [Suspect]
     Active Substance: SACUBITRIL\VALSARTAN
     Indication: Product used for unknown indication
     Dosage: 50 MG, BID (24.3 MG OF SACUBITRIL AND 25.7 MG OF VALSARTAN)
     Route: 048
     Dates: start: 20220720

REACTIONS (4)
  - COVID-19 [Unknown]
  - Cough [Not Recovered/Not Resolved]
  - Illness [Unknown]
  - Hypersensitivity [Unknown]
